FAERS Safety Report 25230192 (Version 1)
Quarter: 2025Q2

REPORT INFORMATION
  Report Type: Spontaneous
  Country: US (occurrence: US)
  Receive Date: 20250423
  Receipt Date: 20250423
  Transmission Date: 20250717
  Serious: Yes (Other)
  Sender: MYLAN
  Company Number: US-MYLANLABS-2025M1034557

PATIENT
  Age: 32 Year
  Sex: Male

DRUGS (8)
  1. PREDNISONE [Suspect]
     Active Substance: PREDNISONE
     Indication: Colitis ulcerative
  2. PREDNISONE [Suspect]
     Active Substance: PREDNISONE
     Route: 065
  3. PREDNISONE [Suspect]
     Active Substance: PREDNISONE
     Route: 065
  4. PREDNISONE [Suspect]
     Active Substance: PREDNISONE
  5. SULFASALAZINE [Suspect]
     Active Substance: SULFASALAZINE
     Indication: Colitis ulcerative
  6. SULFASALAZINE [Suspect]
     Active Substance: SULFASALAZINE
     Route: 065
  7. SULFASALAZINE [Suspect]
     Active Substance: SULFASALAZINE
     Route: 065
  8. SULFASALAZINE [Suspect]
     Active Substance: SULFASALAZINE

REACTIONS (1)
  - Drug ineffective [Unknown]
